FAERS Safety Report 19675163 (Version 1)
Quarter: 2021Q3

REPORT INFORMATION
  Report Type: Spontaneous
  Country: US (occurrence: US)
  Receive Date: 20210809
  Receipt Date: 20210809
  Transmission Date: 20211014
  Serious: No
  Sender: FDA-Public Use
  Company Number: None

PATIENT
  Age: 60 Year
  Sex: Male

DRUGS (1)
  1. IBUPROFEN (IBUPROFEN 6000MG TAB) [Suspect]
     Active Substance: IBUPROFEN
     Dates: start: 20210319, end: 20210429

REACTIONS (1)
  - Tongue disorder [None]

NARRATIVE: CASE EVENT DATE: 20210406
